FAERS Safety Report 12343037 (Version 2)
Quarter: 2016Q2

REPORT INFORMATION
  Report Type: Spontaneous
  Country: US (occurrence: US)
  Receive Date: 20160506
  Receipt Date: 20160520
  Transmission Date: 20160815
  Serious: Yes (Hospitalization, Other)
  Sender: FDA-Public Use
  Company Number: US-009507513-1605USA001304

PATIENT
  Age: 78 Year
  Sex: Female

DRUGS (1)
  1. KEYTRUDA [Suspect]
     Active Substance: PEMBROLIZUMAB
     Indication: MALIGNANT MELANOMA

REACTIONS (6)
  - Uveitis [Recovering/Resolving]
  - Iris disorder [Recovering/Resolving]
  - Cataract [Recovering/Resolving]
  - Ischaemic stroke [Recovering/Resolving]
  - Vasculitic rash [Recovering/Resolving]
  - Ataxia [Recovering/Resolving]

NARRATIVE: CASE EVENT DATE: 20160407
